FAERS Safety Report 5499653-9 (Version None)
Quarter: 2007Q4

REPORT INFORMATION
  Report Type: 
  Country: None (occurrence: None)
  Receive Date: 20071026
  Receipt Date: 20071017
  Transmission Date: 20080405
  Serious: Yes (Hospitalization)
  Sender: FDA-Public Use
  Company Number: FR-PFIZER INC-2006070655

PATIENT
  Sex: Male
  Weight: 83 kg

DRUGS (3)
  1. CADUET [Suspect]
     Indication: HYPERTENSION
     Dosage: TEXT:5 MG/10 MG
     Route: 048
     Dates: start: 20060403, end: 20060509
  2. DIAMICRON [Concomitant]
     Route: 048
  3. HYTACAND [Concomitant]
     Route: 048

REACTIONS (6)
  - ANOREXIA [None]
  - DRUG INTERACTION [None]
  - EPISTAXIS [None]
  - GENERAL PHYSICAL HEALTH DETERIORATION [None]
  - PAIN IN EXTREMITY [None]
  - SLEEP DISORDER [None]
